FAERS Safety Report 11540450 (Version 1)
Quarter: 2015Q3

REPORT INFORMATION
  Report Type: Spontaneous
  Country: US (occurrence: US)
  Receive Date: 20150923
  Receipt Date: 20150923
  Transmission Date: 20151125
  Serious: No
  Sender: FDA-Public Use
  Company Number: US-BEH-2014046702

PATIENT
  Age: 62 Year
  Sex: Female
  Weight: 81 kg

DRUGS (20)
  1. PRIVIGEN [Suspect]
     Active Substance: HUMAN IMMUNOGLOBULIN G
     Route: 042
  2. DEXTROSE 5% [Concomitant]
     Active Substance: DEXTROSE
  3. SODIUM CHLORIDE 0.9% [Concomitant]
     Active Substance: SODIUM CHLORIDE
  4. PREDNISOLONE 5MG TABLET [Concomitant]
  5. SERTRALINE HCL 25MG TABLET [Concomitant]
  6. LISINOPRIL 10MG TABLET [Concomitant]
  7. ACETAMINOPHEN. [Concomitant]
     Active Substance: ACETAMINOPHEN
  8. HEPARIN 10 UNITS/ML [Concomitant]
  9. AMLODIPINE BESYLATE 5MG TAB [Concomitant]
  10. PRIVIGEN [Suspect]
     Active Substance: HUMAN IMMUNOGLOBULIN G
     Indication: MYASTHENIA GRAVIS
     Route: 042
  11. EPI-PEN AUTOINJECTOR [Concomitant]
  12. CALCIUM ANTACID 1000MG TAB [Concomitant]
  13. AYR SALINE 0.65% NOSE SPRAY [Concomitant]
  14. PRIVIGEN [Suspect]
     Active Substance: HUMAN IMMUNOGLOBULIN G
     Dosage: STARTED EARLY 2014
     Route: 042
  15. WARFARIN SODIUM 2MG TABLET [Concomitant]
  16. RHINOCORT AQUA [Concomitant]
     Active Substance: BUDESONIDE
  17. PRIVIGEN [Suspect]
     Active Substance: HUMAN IMMUNOGLOBULIN G
     Route: 042
  18. PRIVIGEN [Suspect]
     Active Substance: HUMAN IMMUNOGLOBULIN G
     Route: 042
  19. DIPHENHYDRAMINE. [Concomitant]
     Active Substance: DIPHENHYDRAMINE
  20. PYRIDOSTIGMINE BR 60MG TAB [Concomitant]

REACTIONS (3)
  - Blood pressure abnormal [Recovered/Resolved]
  - Headache [Recovered/Resolved]
  - Hypertension [Recovered/Resolved]

NARRATIVE: CASE EVENT DATE: 20141118
